FAERS Safety Report 4765419-8 (Version None)
Quarter: 2005Q3

REPORT INFORMATION
  Report Type: 
  Country: None (occurrence: None)
  Receive Date: 20050906
  Receipt Date: 20050824
  Transmission Date: 20060218
  Serious: Yes (Hospitalization, Other)
  Sender: FDA-Public Use
  Company Number: 2005119635

PATIENT
  Age: 54 Year
  Sex: Male

DRUGS (1)
  1. METHYLPREDNISOLONE ACETATE [Suspect]
     Indication: RADIATION PNEUMONITIS
     Dosage: 1 GRAM (1 IN 1 D), INTRAVENOUS
     Route: 042
     Dates: start: 20030520, end: 20030522

REACTIONS (9)
  - BACILLUS INFECTION [None]
  - FISTULA [None]
  - IMMUNOSUPPRESSION [None]
  - IMPAIRED HEALING [None]
  - LUNG DISORDER [None]
  - LUNG INFECTION [None]
  - PLEURAL EFFUSION [None]
  - PLEURAL FIBROSIS [None]
  - PYOPNEUMOTHORAX [None]
